FAERS Safety Report 16025990 (Version 4)
Quarter: 2019Q3

REPORT INFORMATION
  Report Type: Spontaneous
  Country: IT (occurrence: IT)
  Receive Date: 20190302
  Receipt Date: 20190723
  Transmission Date: 20191004
  Serious: Yes (Life-Threatening, Hospitalization, Other)
  Sender: FDA-Public Use
  Company Number: IT-AUROBINDO-AUR-APL-2019-006139

PATIENT

DRUGS (2)
  1. ARIPIPRAZOLE TABLETS 5MG [Suspect]
     Active Substance: ARIPIPRAZOLE
     Dosage: 14 DOSAGE FORM (14 TABLETS OF 5 MG)
     Route: 048
  2. ARIPIPRAZOLE TABLETS 5MG [Suspect]
     Active Substance: ARIPIPRAZOLE
     Indication: MAJOR DEPRESSION
     Dosage: 70 MILLIGRAM, IN TOTAL, 70 MG, 1X, 14 TABLETS OF 5 MG
     Route: 048

REACTIONS (6)
  - Overdose [Recovered/Resolved]
  - Drug abuse [Recovered/Resolved]
  - Suicide attempt [Recovered/Resolved]
  - Atrioventricular block second degree [Recovered/Resolved]
  - Intentional overdose [Recovered/Resolved]
  - Product use in unapproved indication [Unknown]
